FAERS Safety Report 24269747 (Version 1)
Quarter: 2024Q3

REPORT INFORMATION
  Report Type: Spontaneous
  Country: US (occurrence: US)
  Receive Date: 20240830
  Receipt Date: 20240830
  Transmission Date: 20241017
  Serious: No
  Sender: ENDO
  Company Number: ENDG23-05255

PATIENT

DRUGS (3)
  1. PREDNISONE [Suspect]
     Active Substance: PREDNISONE
     Indication: Pain
     Dosage: UNK UNKNOWN, UNKNOWN (TWO MONTHS AGO)
     Route: 065
     Dates: start: 202307
  2. PREDNISONE [Suspect]
     Active Substance: PREDNISONE
     Dosage: UNK UNKNOWN, UNKNOWN (TWO WEEKS AGO)
     Route: 065
     Dates: start: 202308
  3. PREDNISONE [Suspect]
     Active Substance: PREDNISONE
     Dosage: UNK UNKNOWN, UNKNOWN (TIME TO TIME)
     Route: 065

REACTIONS (1)
  - Insomnia [Unknown]
